FAERS Safety Report 4749714-4 (Version None)
Quarter: 2005Q3

REPORT INFORMATION
  Report Type: 
  Country: None (occurrence: None)
  Receive Date: 20050819
  Receipt Date: 20050819
  Transmission Date: 20060218
  Serious: Yes (Other)
  Sender: FDA-Public Use
  Company Number: None

PATIENT
  Age: 41 Year
  Sex: Female
  Weight: 50.8029 kg

DRUGS (1)
  1. ZCAM  COLD REMEDY  SWABS [Suspect]
     Dosage: 1 SWAB   2X   NASAL
     Route: 045
     Dates: start: 20050817, end: 20050818

REACTIONS (1)
  - ANOSMIA [None]
